FAERS Safety Report 6209872-1 (Version None)
Quarter: 2009Q2

REPORT INFORMATION
  Report Type: 
  Country: None (occurrence: None)
  Receive Date: 20090528
  Receipt Date: 20090528
  Transmission Date: 20091009
  Serious: No
  Sender: FDA-Public Use
  Company Number: None

PATIENT
  Age: 73 Year
  Sex: Male

DRUGS (1)
  1. DOCETAXEL [Suspect]
     Indication: LUNG NEOPLASM MALIGNANT
     Dosage: 50 MG ONCE IV
     Route: 042
     Dates: start: 20090507, end: 20090507

REACTIONS (3)
  - BACK PAIN [None]
  - FLUSHING [None]
  - INFUSION RELATED REACTION [None]
